FAERS Safety Report 22008017 (Version 1)
Quarter: 2023Q1

REPORT INFORMATION
  Report Type: Spontaneous
  Country: US (occurrence: None)
  Receive Date: 20230218
  Receipt Date: 20230218
  Transmission Date: 20230417
  Serious: No
  Sender: FDA-Public Use
  Company Number: 2023A037687

PATIENT
  Sex: Female
  Weight: 56.2 kg

DRUGS (1)
  1. BUDESONIDE\FORMOTEROL\GLYCOPYRRONIUM [Suspect]
     Active Substance: BUDESONIDE\FORMOTEROL\GLYCOPYRRONIUM
     Indication: Chronic obstructive pulmonary disease
     Route: 055

REACTIONS (4)
  - Chronic obstructive pulmonary disease [Unknown]
  - Product use issue [Unknown]
  - Device use issue [Unknown]
  - Device malfunction [Unknown]
